FAERS Safety Report 8343712-X (Version None)
Quarter: 2012Q2

REPORT INFORMATION
  Report Type: 
  Country: None (occurrence: None)
  Receive Date: 20120508
  Receipt Date: 20120312
  Transmission Date: 20120825
  Serious: No
  Sender: FDA-Public Use
  Company Number: -BAUSCH-2012BL001855

PATIENT
  Age: 82 Year
  Sex: Female

DRUGS (8)
  1. OPTIVE [Concomitant]
     Indication: DRY EYE
     Route: 047
  2. PREDNISONE [Concomitant]
     Indication: POLYMYALGIA RHEUMATICA
     Route: 048
  3. GENTEAL [Concomitant]
     Indication: DRY EYE
     Route: 047
  4. LOTEMAX [Suspect]
     Route: 047
     Dates: start: 20120309, end: 20120309
  5. RESTASIS [Concomitant]
     Indication: DRY EYE
     Route: 047
  6. LOTEMAX [Suspect]
     Route: 047
     Dates: start: 20120309, end: 20120309
  7. LOTEMAX [Suspect]
     Indication: DRY EYE
     Route: 047
     Dates: start: 20120307, end: 20120307
  8. LOTEMAX [Suspect]
     Indication: OFF LABEL USE
     Route: 047
     Dates: start: 20120307, end: 20120307

REACTIONS (4)
  - NAUSEA [None]
  - ABNORMAL SENSATION IN EYE [None]
  - OCULAR HYPERAEMIA [None]
  - VISION BLURRED [None]
